FAERS Safety Report 23124455 (Version 1)
Quarter: 2023Q4

REPORT INFORMATION
  Report Type: Spontaneous
  Country: US (occurrence: None)
  Receive Date: 20231028
  Receipt Date: 20231028
  Transmission Date: 20240110
  Serious: Yes (Hospitalization, Other)
  Sender: FDA-Public Use
  Company Number: None

PATIENT
  Age: 73 Year
  Sex: Male
  Weight: 155.25 kg

DRUGS (15)
  1. ENOXAPARIN [Suspect]
     Active Substance: ENOXAPARIN
     Indication: Thrombosis prophylaxis
     Dosage: OTHER QUANTITY : 1 INJECTION(S);?FREQUENCY : EVERY 12 HOURS;?
     Route: 058
     Dates: start: 20231023
  2. ASPIRIN [Concomitant]
     Active Substance: ASPIRIN
  3. PLAVIX [Concomitant]
     Active Substance: CLOPIDOGREL BISULFATE
  4. LOVENOX [Concomitant]
     Active Substance: ENOXAPARIN SODIUM
  5. hydralizine [Concomitant]
  6. furesomide [Concomitant]
  7. creator [Concomitant]
  8. HALDOL [Concomitant]
     Active Substance: HALOPERIDOL
  9. NITROGLYCERIN [Concomitant]
     Active Substance: NITROGLYCERIN
  10. VITAMIN D [Concomitant]
     Active Substance: VITAMIN D NOS
  11. INSULIN GLARGINE [Concomitant]
     Active Substance: INSULIN GLARGINE
  12. HUMALOG [Concomitant]
     Active Substance: INSULIN LISPRO
  13. VITAMIN B12 [Concomitant]
     Active Substance: CYANOCOBALAMIN
  14. PREVACID [Concomitant]
     Active Substance: LANSOPRAZOLE
  15. MELATONIN [Concomitant]
     Active Substance: MELATONIN

REACTIONS (2)
  - Hallucination [None]
  - Nervous system disorder [None]

NARRATIVE: CASE EVENT DATE: 20231027
